FAERS Safety Report 24207447 (Version 2)
Quarter: 2024Q3

REPORT INFORMATION
  Report Type: Spontaneous
  Country: JP (occurrence: JP)
  Receive Date: 20240814
  Receipt Date: 20240822
  Transmission Date: 20241017
  Serious: Yes (Life-Threatening)
  Sender: Haleon PLC
  Company Number: JP-HALEON-2190760

PATIENT
  Age: 8 Decade
  Sex: Female

DRUGS (1)
  1. ORLISTAT [Suspect]
     Active Substance: ORLISTAT
     Indication: Weight decreased
     Dosage: TIME INTERVAL: 0.33333333 DAYS:        :1
     Route: 048
     Dates: start: 20240501, end: 20240528

REACTIONS (4)
  - Metabolic alkalosis [Recovered/Resolved]
  - Hypokalaemia [Recovered/Resolved]
  - Diarrhoea [Recovered/Resolved]
  - Oedema [Recovered/Resolved]

NARRATIVE: CASE EVENT DATE: 20240501
